FAERS Safety Report 7062586-0 (Version None)
Quarter: 2010Q4

REPORT INFORMATION
  Report Type: 
  Country: None (occurrence: None)
  Receive Date: 20101026
  Receipt Date: 20091223
  Transmission Date: 20110411
  Serious: No
  Sender: FDA-Public Use
  Company Number: US-PFIZER INC-2009294349

PATIENT
  Sex: Male
  Weight: 87.1 kg

DRUGS (7)
  1. LIPITOR [Suspect]
     Indication: BLOOD CHOLESTEROL INCREASED
     Dosage: 40 MG, 1X/DAY
     Route: 048
     Dates: start: 20050101, end: 20050101
  2. GLIPIZIDE [Concomitant]
  3. METFORMIN [Concomitant]
     Dosage: 500 MG, UNK
  4. METOPROLOL [Concomitant]
     Dosage: 100 MG, UNK
  5. NEXIUM [Concomitant]
     Dosage: 40 MG, UNK
  6. ACTOS [Concomitant]
  7. Q10 [Concomitant]

REACTIONS (4)
  - ABASIA [None]
  - DRUG INEFFECTIVE [None]
  - MUSCLE SPASMS [None]
  - PAIN [None]
